FAERS Safety Report 8762846 (Version 6)
Quarter: 2022Q4

REPORT INFORMATION
  Report Type: Report from Study
  Country: US (occurrence: US)
  Receive Date: 20120829
  Receipt Date: 20221219
  Transmission Date: 20230112
  Serious: Yes (Other)
  Sender: FDA-Public Use
  Company Number: US-PFIZER INC-2012208622

PATIENT
  Sex: Male
  Weight: 81.633 kg

DRUGS (4)
  1. DILANTIN [Suspect]
     Active Substance: PHENYTOIN
     Indication: Seizure
     Dosage: 400 MG, DAILY (A TOTAL DOSE OF 4 CAPSULES OF 100MG IN A DAY)
     Route: 048
  2. DILANTIN [Suspect]
     Active Substance: PHENYTOIN
     Dosage: 100 MILLIGRAM, QD
     Route: 048
  3. DILANTIN [Suspect]
     Active Substance: PHENYTOIN
     Dosage: 400 MG, DAILY (A TOTAL DOSE OF 4 CAPSULES OF 100MG IN A DAY/100MG, 4 TABLETS BY MOUTH DAILY)
     Route: 048
  4. PHENYTOIN [Suspect]
     Active Substance: PHENYTOIN
     Indication: Product used for unknown indication
     Dosage: UNK
     Route: 065

REACTIONS (8)
  - Seizure [Unknown]
  - Drug ineffective [Unknown]
  - Limb discomfort [Unknown]
  - Peripheral swelling [Unknown]
  - Fluid retention [Unknown]
  - Erythema [Recovered/Resolved]
  - Localised infection [Recovered/Resolved]
  - Anticonvulsant drug level increased [Unknown]
